FAERS Safety Report 7107329-7 (Version None)
Quarter: 2010Q4

REPORT INFORMATION
  Report Type: 
  Country: None (occurrence: None)
  Receive Date: 20101117
  Receipt Date: 20091022
  Transmission Date: 20110411
  Serious: No
  Sender: FDA-Public Use
  Company Number: 2009BI034440

PATIENT
  Age: 53 Year
  Sex: Female

DRUGS (7)
  1. TYSABRI [Suspect]
     Indication: MULTIPLE SCLEROSIS
     Route: 042
     Dates: start: 20070409
  2. HYDROXYZINE [Concomitant]
  3. ZOCOR [Concomitant]
  4. CLARITIN [Concomitant]
  5. SINGULAIR [Concomitant]
  6. QUININE [Concomitant]
  7. PROVIGIL [Concomitant]

REACTIONS (12)
  - ANAEMIA VITAMIN B12 DEFICIENCY [None]
  - BACK PAIN [None]
  - COGNITIVE DISORDER [None]
  - DECREASED APPETITE [None]
  - HEADACHE [None]
  - MOBILITY DECREASED [None]
  - MOOD SWINGS [None]
  - MULTIPLE SCLEROSIS RELAPSE [None]
  - NAUSEA [None]
  - PAIN IN EXTREMITY [None]
  - TOOTH INFECTION [None]
  - VOMITING [None]
